FAERS Safety Report 8326618-1 (Version None)
Quarter: 2012Q2

REPORT INFORMATION
  Report Type: 
  Country: None (occurrence: None)
  Receive Date: 20120501
  Receipt Date: 20110707
  Transmission Date: 20120825
  Serious: No
  Sender: FDA-Public Use
  Company Number: US-SANOFI-AVENTIS-2011SA044733

PATIENT
  Age: 48 Year
  Sex: Female

DRUGS (2)
  1. APIDRA [Suspect]
     Dosage: DOSE:10 UNIT(S)
     Route: 058
  2. SOLOSTAR [Suspect]

REACTIONS (4)
  - BLOOD GLUCOSE DECREASED [None]
  - FEELING ABNORMAL [None]
  - DRUG DISPENSING ERROR [None]
  - ASTHENIA [None]
